FAERS Safety Report 7102524-5 (Version None)
Quarter: 2010Q4

REPORT INFORMATION
  Report Type: 
  Country: None (occurrence: None)
  Receive Date: 20101115
  Receipt Date: 20101105
  Transmission Date: 20110411
  Serious: Yes (Other)
  Sender: FDA-Public Use
  Company Number: US-ROCHE-739893

PATIENT
  Sex: Female
  Weight: 72.3 kg

DRUGS (1)
  1. BONIVA [Suspect]
     Indication: OSTEOPOROSIS
     Route: 048
     Dates: start: 20090101

REACTIONS (5)
  - DRUG DOSE OMISSION [None]
  - JAW DISORDER [None]
  - KNEE OPERATION [None]
  - ORAL DISORDER [None]
  - TOOTH DISORDER [None]
